FAERS Safety Report 13516737 (Version 1)
Quarter: 2017Q2

REPORT INFORMATION
  Report Type: Spontaneous
  Country: US (occurrence: US)
  Receive Date: 20170504
  Receipt Date: 20170504
  Transmission Date: 20170830
  Serious: Yes (Disabling)
  Sender: FDA-Public Use
  Company Number: None

PATIENT
  Age: 48 Year
  Sex: Male
  Weight: 123.7 kg

DRUGS (5)
  1. METOPROLOL. [Concomitant]
     Active Substance: METOPROLOL
  2. LISINOPRIL. [Concomitant]
     Active Substance: LISINOPRIL
  3. ELIQUIS [Concomitant]
     Active Substance: APIXABAN
  4. DOFETILIDE 500MCG [Suspect]
     Active Substance: DOFETILIDE
     Indication: ATRIAL FIBRILLATION
     Dosage: ?          QUANTITY:1 CAPSULE(S);?EVERY 12 HOURS ORAL
     Route: 048
     Dates: start: 20161220, end: 20170503
  5. TYLENOL [Concomitant]
     Active Substance: ACETAMINOPHEN

REACTIONS (4)
  - Flank pain [None]
  - Fall [None]
  - Impaired work ability [None]
  - Renal cyst [None]

NARRATIVE: CASE EVENT DATE: 20170301
